FAERS Safety Report 5538076-0 (Version None)
Quarter: 2007Q4

REPORT INFORMATION
  Report Type: 
  Country: None (occurrence: None)
  Receive Date: 20071207
  Receipt Date: 20071204
  Transmission Date: 20080405
  Serious: No
  Sender: FDA-Public Use
  Company Number: US-BOEHRINGER INGELHEIM PHARMACEUTICALS, INC.-2006-BP-07601VE

PATIENT
  Sex: Female
  Weight: 123.83 kg

DRUGS (1)
  1. PERSANTINE [Suspect]
     Indication: CARDIAC STRESS TEST
     Route: 042
     Dates: start: 20060630, end: 20060630

REACTIONS (3)
  - APPLICATION SITE IRRITATION [None]
  - EXTRAVASATION [None]
  - INFUSION SITE EXTRAVASATION [None]
